FAERS Safety Report 8911976 (Version 1)
Quarter: 2012Q4

REPORT INFORMATION
  Report Type: 
  Country: AT (occurrence: AT)
  Receive Date: 20121115
  Receipt Date: 20121115
  Transmission Date: 20130627
  Serious: Yes (Other)
  Sender: FDA-Public Use
  Company Number: AT-PFIZER INC-2012286175

PATIENT
  Age: 45 Year
  Sex: Male
  Weight: 130 kg

DRUGS (1)
  1. SORTIS [Suspect]
     Indication: CORONARY ARTERY DISEASE
     Dosage: 80 mg, UNK
     Route: 048
     Dates: start: 20080122, end: 201111

REACTIONS (2)
  - Oedema peripheral [Recovered/Resolved]
  - Drug intolerance [Recovered/Resolved]
